FAERS Safety Report 7461462-9 (Version None)
Quarter: 2011Q2

REPORT INFORMATION
  Report Type: 
  Country: None (occurrence: None)
  Receive Date: 20110506
  Receipt Date: 20110502
  Transmission Date: 20111010
  Serious: No
  Sender: FDA-Public Use
  Company Number: US-PFIZER INC-2011094877

PATIENT
  Sex: Female

DRUGS (2)
  1. DETROL [Suspect]
     Dosage: UNK
     Dates: end: 20100101
  2. PROSED/DS [Concomitant]
     Indication: CYSTITIS INTERSTITIAL
     Dosage: 1 DF, EVERY 4 HRS
     Route: 048
     Dates: start: 20030101, end: 20110101

REACTIONS (1)
  - CONSTIPATION [None]
